FAERS Safety Report 7405050-9 (Version None)
Quarter: 2011Q1

REPORT INFORMATION
  Report Type: 
  Country: None (occurrence: None)
  Receive Date: 20110331
  Receipt Date: 20100928
  Transmission Date: 20110831
  Serious: Yes (Other)
  Sender: FDA-Public Use
  Company Number: 2011MA002855

PATIENT
  Age: 51 Year
  Sex: Female

DRUGS (16)
  1. RANITIDINE [Concomitant]
  2. TAXOTERE [Concomitant]
  3. RADIOTHERAPY [Concomitant]
  4. CLEXANE [Concomitant]
  5. EPIRUBICIN [Concomitant]
  6. CYCLOPHOSPHAMIDE [Concomitant]
  7. CAPECITABINE [Concomitant]
  8. GEMCITABINE [Concomitant]
  9. FLUOROURACIL [Concomitant]
  10. CAPECITABINE [Concomitant]
  11. CIPROFLOXACIN [Concomitant]
  12. CHLORPHENIRAMINE MALEATE [Concomitant]
  13. DEXAMETHASONE [Concomitant]
  14. VARENICLINE [Concomitant]
  15. PACLITAXEL [Suspect]
     Indication: BREAST CANCER RECURRENT
     Dosage: 162 MG; QW; IV
     Route: 042
     Dates: start: 20100609, end: 20100728
  16. CARBOPLATIN [Concomitant]

REACTIONS (3)
  - HYPERTENSION [None]
  - FLUSHING [None]
  - LOSS OF CONSCIOUSNESS [None]
